FAERS Safety Report 5055561-9 (Version None)
Quarter: 2006Q3

REPORT INFORMATION
  Report Type: 
  Country: None (occurrence: None)
  Receive Date: 20060714
  Receipt Date: 20060629
  Transmission Date: 20061208
  Serious: Yes (Hospitalization, Other)
  Sender: FDA-Public Use
  Company Number: USA050290522

PATIENT
  Age: 59 Year
  Sex: Female

DRUGS (6)
  1. ZYPREXA [Suspect]
     Indication: SCHIZOPHRENIA
     Dosage: SEE IMAGE
     Route: 048
     Dates: start: 19970101
  2. ZYPREXA [Suspect]
     Route: 048
  3. ZYPREXA [Suspect]
     Route: 048
  4. XANAX (ALPRAZOLAM SODIUM) [Concomitant]
  5. MONOPRIL [Concomitant]
  6. COUMADIN [Concomitant]

REACTIONS (21)
  - BLOOD GLUCOSE FLUCTUATION [None]
  - BLOOD GLUCOSE INCREASED [None]
  - CARDIAC DISORDER [None]
  - CHOLECYSTITIS [None]
  - DIABETES MELLITUS [None]
  - HYPOGLYCAEMIA [None]
  - MALAISE [None]
  - MALIGNANT MELANOMA [None]
  - NEOPLASM MALIGNANT [None]
  - OLIGURIA [None]
  - PANCREATITIS [None]
  - POLLAKIURIA [None]
  - RENAL CYST [None]
  - RENAL DISORDER [None]
  - RENAL PAIN [None]
  - SCAR [None]
  - SKIN CANCER [None]
  - SKIN LESION [None]
  - TREMOR [None]
  - VISION BLURRED [None]
  - VISUAL ACUITY REDUCED [None]
